FAERS Safety Report 8419202-2 (Version None)
Quarter: 2012Q2

REPORT INFORMATION
  Report Type: 
  Country: None (occurrence: None)
  Receive Date: 20120607
  Receipt Date: 20120524
  Transmission Date: 20120825
  Serious: No
  Sender: FDA-Public Use
  Company Number: US-JNJFOC-20120519973

PATIENT
  Sex: Female
  Weight: 56.7 kg

DRUGS (4)
  1. REMICADE [Suspect]
     Route: 042
     Dates: start: 20120229
  2. FOSAMAX [Concomitant]
     Indication: OSTEOPOROSIS
     Route: 048
     Dates: start: 19900101
  3. REMICADE [Suspect]
     Indication: PSORIATIC ARTHROPATHY
     Route: 042
     Dates: start: 20120509
  4. LIPITOR [Concomitant]
     Indication: BLOOD PRESSURE
     Route: 048
     Dates: start: 19920101

REACTIONS (5)
  - RASH MACULAR [None]
  - RASH [None]
  - FUNGAL INFECTION [None]
  - SKIN EXFOLIATION [None]
  - PRURITUS [None]
